FAERS Safety Report 16452159 (Version 2)
Quarter: 2019Q2

REPORT INFORMATION
  Report Type: Spontaneous
  Country: DE (occurrence: DE)
  Receive Date: 20190619
  Receipt Date: 20190619
  Transmission Date: 20190711
  Serious: Yes (Hospitalization)
  Sender: FDA-Public Use
  Company Number: DE-BAYER-2019-114880

PATIENT
  Age: 0 Day
  Sex: Female
  Weight: 2.23 kg

DRUGS (1)
  1. KYLEENA [Suspect]
     Active Substance: LEVONORGESTREL
     Indication: CONTRACEPTION
     Dosage: 17.5 MCG/24HR, CONT
     Route: 064
     Dates: start: 20180629

REACTIONS (3)
  - Low birth weight baby [None]
  - Foetal exposure during pregnancy [None]
  - Premature baby [None]

NARRATIVE: CASE EVENT DATE: 20190124
